FAERS Safety Report 15691987 (Version 1)
Quarter: 2018Q4

REPORT INFORMATION
  Report Type: Spontaneous
  Country: US (occurrence: US)
  Receive Date: 20181205
  Receipt Date: 20181205
  Transmission Date: 20190205
  Serious: Yes (Other)
  Sender: FDA-Public Use
  Company Number: US-SHIRE-US201846528

PATIENT
  Sex: Female
  Weight: 72.11 kg

DRUGS (1)
  1. CUVITRU [Suspect]
     Active Substance: HUMAN IMMUNOGLOBULIN G
     Indication: PRODUCT USED FOR UNKNOWN INDICATION
     Dosage: 8 G, 1X/WEEK
     Route: 058
     Dates: start: 20180827

REACTIONS (2)
  - Autoimmune thyroiditis [Unknown]
  - Thyroid disorder [Unknown]
